FAERS Safety Report 5253545-9 (Version None)
Quarter: 2007Q1

REPORT INFORMATION
  Report Type: 
  Country: None (occurrence: None)
  Receive Date: 20070301
  Receipt Date: 20070219
  Transmission Date: 20070707
  Serious: Yes (Other)
  Sender: FDA-Public Use
  Company Number: GB-PFIZER INC-2007013770

PATIENT
  Age: 29 Year
  Sex: Male
  Weight: 70 kg

DRUGS (4)
  1. LYRICA [Suspect]
     Indication: COMPLEX PARTIAL SEIZURES
     Route: 048
  2. GABAPENTIN [Concomitant]
     Route: 048
  3. LAMOTRIGINE [Concomitant]
     Dosage: DAILY DOSE:300MG
  4. PHENYTOIN [Concomitant]
     Dosage: DAILY DOSE:300MG
     Route: 048

REACTIONS (6)
  - AGGRESSION [None]
  - DEPERSONALISATION [None]
  - FEAR [None]
  - HALLUCINATION [None]
  - MUTISM [None]
  - TACHYARRHYTHMIA [None]
